FAERS Safety Report 21754440 (Version 6)
Quarter: 2024Q1

REPORT INFORMATION
  Report Type: Spontaneous
  Country: US (occurrence: US)
  Receive Date: 20221220
  Receipt Date: 20240219
  Transmission Date: 20240410
  Serious: Yes (Other)
  Sender: FDA-Public Use
  Company Number: US-PFIZER INC-202101050059

PATIENT
  Age: 82 Year
  Sex: Female

DRUGS (2)
  1. BOSULIF [Suspect]
     Active Substance: BOSUTINIB MONOHYDRATE
     Indication: Chronic myeloid leukaemia
     Dosage: 100 MG
  2. BOSULIF [Suspect]
     Active Substance: BOSUTINIB MONOHYDRATE
     Dosage: [TAKE 2 TABLETS BY MOUTH DAILY/TAKE WITH FOOD. SWALLOW TABLETS WHOLE; DO NOT CRUSH OR CUT TABLETS]
     Route: 048

REACTIONS (2)
  - Eye operation [Unknown]
  - Product dose omission issue [Unknown]
